FAERS Safety Report 9283706 (Version 13)
Quarter: 2016Q3

REPORT INFORMATION
  Report Type: Spontaneous
  Country: US (occurrence: US)
  Receive Date: 20130510
  Receipt Date: 20160824
  Transmission Date: 20161109
  Serious: Yes (Life-Threatening, Hospitalization, Other)
  Sender: FDA-Public Use
  Company Number: US-GLAXOSMITHKLINE-A1023099A

PATIENT
  Age: 44 Year
  Sex: Female
  Weight: 105 kg

DRUGS (9)
  1. REVATIO [Concomitant]
     Active Substance: SILDENAFIL CITRATE
  2. SILDENAFIL. [Concomitant]
     Active Substance: SILDENAFIL
  3. LASIX [Concomitant]
     Active Substance: FUROSEMIDE
  4. FLOLAN [Suspect]
     Active Substance: EPOPROSTENOL SODIUM
     Dosage: UNK
     Dates: start: 20080801
  5. FLOLAN [Suspect]
     Active Substance: EPOPROSTENOL SODIUM
     Dosage: 53.5 NG/KG/MIN
     Dates: start: 20080801
  6. FLOLAN [Suspect]
     Active Substance: EPOPROSTENOL SODIUM
     Dosage: 56 NG/KG/MIN CONTINUOUS
     Route: 042
     Dates: start: 20100628
  7. LETAIRIS [Concomitant]
     Active Substance: AMBRISENTAN
  8. FLOLAN [Suspect]
     Active Substance: EPOPROSTENOL SODIUM
     Indication: PULMONARY ARTERIAL HYPERTENSION
     Dosage: CONCENTRATION 105,000 NG/MLVIAL 1.5 MG53.5 NG/KG/MIN, 1.5 MG VIAL STRENGTH, 105,000 NG/ML CONC,[...]
     Route: 042
     Dates: start: 20080801
  9. FLOLAN [Suspect]
     Active Substance: EPOPROSTENOL SODIUM
     Dosage: 56 DF, CO

REACTIONS (10)
  - Hospitalisation [Unknown]
  - Abdominal discomfort [Unknown]
  - Dizziness [Unknown]
  - Pyrexia [Unknown]
  - Large intestinal haemorrhage [Recovered/Resolved]
  - Rectal haemorrhage [Unknown]
  - Haemoglobin decreased [Recovered/Resolved]
  - Fluid retention [Recovered/Resolved]
  - Pneumonia [Recovered/Resolved]
  - Transfusion [Recovered/Resolved]

NARRATIVE: CASE EVENT DATE: 20130502
